FAERS Safety Report 9176155 (Version 1)
Quarter: 2013Q1

REPORT INFORMATION
  Report Type: Spontaneous
  Country: IT (occurrence: IT)
  Receive Date: 20130321
  Receipt Date: 20130321
  Transmission Date: 20140127
  Serious: Yes (Other)
  Sender: FDA-Public Use
  Company Number: PHHY2013IT025253

PATIENT
  Sex: Male

DRUGS (7)
  1. CARVEDILOL [Suspect]
     Indication: CARDIAC FAILURE
     Dosage: 25 MG, QD
     Route: 048
     Dates: start: 20120918, end: 201211
  2. CARVEDILOL [Suspect]
     Dosage: 50 MG, QD
     Route: 048
     Dates: start: 201211, end: 20130108
  3. TRIATEC [Concomitant]
     Indication: HYPERTENSION
  4. LASIX [Concomitant]
     Indication: HYPERTENSION
  5. ALDACTONE [Concomitant]
     Indication: HYPERTENSION
  6. SIVASTIN [Concomitant]
     Indication: HYPERCHOLESTEROLAEMIA
  7. COUMADINE [Concomitant]

REACTIONS (1)
  - Bronchostenosis [Recovering/Resolving]
